FAERS Safety Report 15841814 (Version 1)
Quarter: 2019Q1

REPORT INFORMATION
  Report Type: Spontaneous
  Country: US (occurrence: US)
  Receive Date: 20190115
  Receipt Date: 20190115
  Transmission Date: 20190417
  Serious: No
  Sender: FDA-Public Use
  Company Number: None

PATIENT
  Age: 74 Year

DRUGS (1)
  1. LETAIRIS [Suspect]
     Active Substance: AMBRISENTAN

REACTIONS (2)
  - Therapy cessation [None]
  - Inability to afford medication [None]

NARRATIVE: CASE EVENT DATE: 20190115
